FAERS Safety Report 9658041 (Version 1)
Quarter: 2013Q4

REPORT INFORMATION
  Report Type: Spontaneous
  Country: AU (occurrence: AU)
  Receive Date: 20131030
  Receipt Date: 20131030
  Transmission Date: 20140711
  Serious: Yes (Other)
  Sender: FDA-Public Use
  Company Number: AU-ACTAVIS-2013-19527

PATIENT
  Sex: Female

DRUGS (1)
  1. ALENDRONATE-GA [Suspect]
     Indication: PRODUCT USED FOR UNKNOWN INDICATION
     Dosage: 70 MG; EVERY 10 DAYS
     Route: 048
     Dates: start: 201305

REACTIONS (2)
  - Bone loss [Unknown]
  - Abdominal pain upper [Unknown]
